FAERS Safety Report 8459886-6 (Version None)
Quarter: 2012Q2

REPORT INFORMATION
  Report Type: 
  Country: None (occurrence: None)
  Receive Date: 20120622
  Receipt Date: 20120618
  Transmission Date: 20120825
  Serious: Yes (Hospitalization)
  Sender: FDA-Public Use
  Company Number: PHHY2012JP008930

PATIENT
  Age: 39 Year
  Sex: Male

DRUGS (1)
  1. NEORAL [Suspect]
     Indication: BEHCET'S SYNDROME
     Dosage: UNK
     Route: 048
     Dates: start: 20040401, end: 20100401

REACTIONS (1)
  - BEHCET'S SYNDROME [None]
